FAERS Safety Report 7387040-8 (Version None)
Quarter: 2011Q1

REPORT INFORMATION
  Report Type: 
  Country: None (occurrence: None)
  Receive Date: 20110331
  Receipt Date: 20101020
  Transmission Date: 20110831
  Serious: Yes (Hospitalization, Other)
  Sender: FDA-Public Use
  Company Number: US-BAYER-201022905NA

PATIENT
  Sex: Female
  Weight: 84.354 kg

DRUGS (2)
  1. WELLBUTRIN [Concomitant]
  2. YAZ [Suspect]
     Indication: CONTRACEPTION
     Dosage: UNK UNK, UNK
     Route: 048
     Dates: start: 20080401, end: 20090101

REACTIONS (9)
  - GALLBLADDER CHOLESTEROLOSIS [None]
  - FOOD INTOLERANCE [None]
  - GALLBLADDER INJURY [None]
  - GALLBLADDER DISORDER [None]
  - BILIARY COLIC [None]
  - ABDOMINAL PAIN [None]
  - VOMITING [None]
  - EJECTION FRACTION DECREASED [None]
  - WEIGHT DECREASED [None]
